FAERS Safety Report 7018664-5 (Version None)
Quarter: 2010Q3

REPORT INFORMATION
  Report Type: 
  Country: None (occurrence: None)
  Receive Date: 20100924
  Receipt Date: 20100916
  Transmission Date: 20110219
  Serious: Yes (Other)
  Sender: FDA-Public Use
  Company Number: ESP10000120

PATIENT
  Age: 53 Year
  Sex: Female
  Weight: 57 kg

DRUGS (1)
  1. ACTONEL [Suspect]
     Indication: OSTEOPOROSIS
     Dosage: 75 MG, 2 CD/MONTH
     Dates: start: 20100523, end: 20100524

REACTIONS (2)
  - CONJUNCTIVITIS [None]
  - IRITIS [None]
